FAERS Safety Report 7477559-3 (Version None)
Quarter: 2011Q2

REPORT INFORMATION
  Report Type: 
  Country: None (occurrence: None)
  Receive Date: 20110513
  Receipt Date: 20110503
  Transmission Date: 20111010
  Serious: Yes (Hospitalization)
  Sender: FDA-Public Use
  Company Number: DK-RANBAXY-2011RR-44286

PATIENT
  Age: 42 Year
  Sex: Female

DRUGS (3)
  1. AMITRIPTYLINE HCL [Suspect]
     Indication: NEURALGIA
     Dosage: 25 MG, UNK
     Route: 048
     Dates: start: 20090401, end: 20090403
  2. AMITRIPTYLINE HCL [Suspect]
     Dosage: 50 MG, UNK
     Dates: start: 20090403, end: 20090511
  3. GABAPENTIN [Suspect]
     Indication: NEURALGIA
     Dosage: 300 MG, QD
     Dates: start: 20090326, end: 20090330

REACTIONS (2)
  - CONVULSION [None]
  - DYSTONIA [None]
